FAERS Safety Report 6908903-0 (Version None)
Quarter: 2010Q3

REPORT INFORMATION
  Report Type: 
  Country: None (occurrence: None)
  Receive Date: 20100803
  Receipt Date: 20100728
  Transmission Date: 20110219
  Serious: Yes (Other)
  Sender: FDA-Public Use
  Company Number: 20108873

PATIENT
  Age: 26 Year
  Sex: Female

DRUGS (1)
  1. LIORESAL [Suspect]
     Indication: MUSCLE SPASTICITY
     Dosage: 400-200 MCG DAILY INTRATHECAL
     Route: 037

REACTIONS (7)
  - ADHESION [None]
  - DEVICE MALFUNCTION [None]
  - FIBROSIS [None]
  - IMPLANT SITE CALCIFICATION [None]
  - INFLAMMATION [None]
  - MASS [None]
  - THERAPEUTIC RESPONSE DECREASED [None]
